FAERS Safety Report 23581010 (Version 1)
Quarter: 2024Q1

REPORT INFORMATION
  Report Type: Spontaneous
  Country: US (occurrence: US)
  Receive Date: 20240229
  Receipt Date: 20240229
  Transmission Date: 20240410
  Serious: Yes (Other)
  Sender: FDA-Public Use
  Company Number: None

PATIENT
  Age: 53 Year
  Sex: Male

DRUGS (6)
  1. DOXORUBICIN [Suspect]
     Active Substance: DOXORUBICIN
     Indication: Hepatosplenic T-cell lymphoma
     Dosage: ONE ROUND
  2. CYCLOPHOSPHAMIDE [Suspect]
     Active Substance: CYCLOPHOSPHAMIDE
     Indication: Hepatosplenic T-cell lymphoma
     Dosage: ONE ROUND
  3. DEXAMETHASONE [Suspect]
     Active Substance: DEXAMETHASONE
     Indication: Hepatosplenic T-cell lymphoma
     Dosage: ONE ROUND
  4. VINCRISTINE [Suspect]
     Active Substance: VINCRISTINE
     Indication: Hepatosplenic T-cell lymphoma
     Dosage: ONE ROUND
  5. ETOPOSIDE [Suspect]
     Active Substance: ETOPOSIDE
     Indication: Hepatosplenic T-cell lymphoma
     Dosage: ONE ROUND
  6. ACETAMINOPHEN [Concomitant]
     Active Substance: ACETAMINOPHEN
     Dosage: AS NEEDED

REACTIONS (1)
  - Neutropenia [Unknown]
